FAERS Safety Report 4580507-7 (Version None)
Quarter: 2005Q1

REPORT INFORMATION
  Report Type: 
  Country: None (occurrence: None)
  Receive Date: 20050127
  Receipt Date: 20041122
  Transmission Date: 20050727
  Serious: No
  Sender: FDA-Public Use
  Company Number: USA040773709

PATIENT
  Age: 51 Year
  Sex: Male
  Weight: 84 kg

DRUGS (4)
  1. STRATTERA [Suspect]
     Indication: ATTENTION DEFICIT/HYPERACTIVITY DISORDER
     Dosage: 60 MG DAY
     Dates: start: 20040628
  2. PROZAC [Suspect]
     Indication: DEPRESSION
  3. SULFAMETHOXAZOLE + TRIMETHOPRIM [Concomitant]
  4. DEPAKOTE (VALPORATE SEMISODIUM) [Concomitant]

REACTIONS (9)
  - ERECTILE DYSFUNCTION [None]
  - ERYTHEMA [None]
  - GENITAL INFECTION FUNGAL [None]
  - HERPES SIMPLEX [None]
  - HYPERSENSITIVITY [None]
  - LIBIDO DECREASED [None]
  - NAUSEA [None]
  - PENILE BLISTER [None]
  - PENILE SWELLING [None]
